FAERS Safety Report 7977204-4 (Version None)
Quarter: 2011Q4

REPORT INFORMATION
  Report Type: 
  Country: None (occurrence: None)
  Receive Date: 20111213
  Receipt Date: 20111114
  Transmission Date: 20120403
  Serious: No
  Sender: FDA-Public Use
  Company Number: US-AMGEN-USASP2011059753

PATIENT
  Age: 55 Year
  Sex: Female

DRUGS (2)
  1. ENBREL [Suspect]
     Indication: PSORIASIS
     Dosage: UNK
  2. TREXALL [Concomitant]
     Dosage: UNK

REACTIONS (5)
  - SNEEZING [None]
  - THERAPEUTIC RESPONSE DECREASED [None]
  - PSORIASIS [None]
  - RHINORRHOEA [None]
  - COUGH [None]
